FAERS Safety Report 24261074 (Version 1)
Quarter: 2024Q3

REPORT INFORMATION
  Report Type: Spontaneous
  Country: US (occurrence: US)
  Receive Date: 20240829
  Receipt Date: 20240829
  Transmission Date: 20241016
  Serious: Yes (Hospitalization, Other)
  Sender: NOVO NORDISK
  Company Number: US-NOVOPROD-1273454

PATIENT
  Age: 56 Year
  Sex: Female
  Weight: 119.27 kg

DRUGS (1)
  1. OZEMPIC [Suspect]
     Active Substance: SEMAGLUTIDE
     Indication: Product used for unknown indication
     Dosage: UNK
     Route: 058

REACTIONS (3)
  - Colitis ischaemic [Not Recovered/Not Resolved]
  - Pulmonary embolism [Unknown]
  - Hernia repair [Unknown]

NARRATIVE: CASE EVENT DATE: 20231026
